FAERS Safety Report 13336769 (Version 1)
Quarter: 2017Q1

REPORT INFORMATION
  Report Type: Spontaneous
  Country: SE (occurrence: SE)
  Receive Date: 20170315
  Receipt Date: 20170315
  Transmission Date: 20170428
  Serious: Yes (Hospitalization)
  Sender: FDA-Public Use
  Company Number: SE-TEVA-747503ACC

PATIENT
  Age: 84 Year
  Sex: Male

DRUGS (14)
  1. FOLACIN [Concomitant]
     Active Substance: FOLIC ACID
  2. ATORVASTATIN ACTAVIS [Concomitant]
     Active Substance: ATORVASTATIN
  3. OXASCAND 5 MG TABLETT [Suspect]
     Active Substance: OXAZEPAM
     Dosage: 5 MILLIGRAM DAILY;
     Dates: end: 20170216
  4. IMDUR [Concomitant]
     Active Substance: ISOSORBIDE MONONITRATE
  5. LEVAXIN [Concomitant]
     Active Substance: LEVOTHYROXINE SODIUM
  6. LAKTULOS [Concomitant]
  7. ELIQUIS [Concomitant]
     Active Substance: APIXABAN
  8. FUROSEMIDE. [Suspect]
     Active Substance: FUROSEMIDE
     Indication: CARDIAC FAILURE
     Dosage: 40 MILLIGRAM DAILY;
     Route: 048
     Dates: start: 20170106
  9. PANTOLOC [Concomitant]
     Active Substance: PANTOPRAZOLE SODIUM
  10. BEHEPAN [Concomitant]
     Active Substance: HYDROXOCOBALAMIN
  11. RAMIPRIL ACTAVIS [Concomitant]
     Active Substance: RAMIPRIL
  12. FINASTERID SANDOZ [Concomitant]
  13. METOPROLOL. [Suspect]
     Active Substance: METOPROLOL
     Indication: CARDIAC FAILURE
     Dosage: 200 MILLIGRAM DAILY;
     Route: 048
     Dates: start: 20161227
  14. ALVEDON [Concomitant]
     Active Substance: ACETAMINOPHEN

REACTIONS (3)
  - Hypotension [Recovered/Resolved]
  - Dizziness [Recovered/Resolved]
  - Dehydration [Recovered/Resolved]

NARRATIVE: CASE EVENT DATE: 20170216
